FAERS Safety Report 4563871-4 (Version None)
Quarter: 2005Q1

REPORT INFORMATION
  Report Type: 
  Country: None (occurrence: None)
  Receive Date: 20050128
  Receipt Date: 20041215
  Transmission Date: 20050727
  Serious: Yes (Life-Threatening, Hospitalization, Other)
  Sender: FDA-Public Use
  Company Number: PHBS2004JP16861

PATIENT
  Age: 57 Year
  Sex: Female
  Weight: 45 kg

DRUGS (6)
  1. GASTER D [Concomitant]
     Indication: GASTRIC ULCER
     Dosage: 40 MG, UNK
     Route: 048
     Dates: start: 20041016
  2. SALAZOPYRIN [Concomitant]
     Indication: COLITIS
     Dosage: 1 G, UNK
     Dates: start: 20041104, end: 20041124
  3. DIOVAN [Suspect]
     Indication: HYPERTENSION
     Dosage: 80 MG/DAY
     Route: 048
     Dates: start: 20041106, end: 20041124
  4. DIOVAN [Suspect]
     Dosage: 40 MG/DAY
     Route: 048
     Dates: start: 20041124, end: 20041201
  5. DIOVAN [Suspect]
     Dosage: 80 MG/DAY
     Route: 048
     Dates: start: 20040901, end: 20041015
  6. DIOVAN [Suspect]
     Dosage: 80 MG/DAY
     Route: 048
     Dates: start: 20041016, end: 20041030

REACTIONS (3)
  - ANAEMIA [None]
  - MELAENA [None]
  - VASODILATATION [None]
